FAERS Safety Report 8358000 (Version 3)
Quarter: 2018Q2

REPORT INFORMATION
  Report Type: Spontaneous
  Country: US (occurrence: US)
  Receive Date: 20120127
  Receipt Date: 20180518
  Transmission Date: 20180711
  Serious: No
  Sender: FDA-Public Use
  Company Number: US-GLAXOSMITHKLINE-A0948250A

PATIENT
  Sex: Male

DRUGS (5)
  1. WELLBUTRIN XL [Suspect]
     Active Substance: BUPROPION HYDROCHLORIDE
     Dosage: 300 MG, UNK
  2. WELLBUTRIN SR [Suspect]
     Active Substance: BUPROPION HYDROCHLORIDE
     Dosage: 200 MG, UNK
  3. BUPROPION XL [Suspect]
     Active Substance: BUPROPION
  4. BUPROPION SR PROLONGED-RELEASE TABLET [Suspect]
     Active Substance: BUPROPION
  5. BUPROPION HYDROCHLORIDE TABLET [Suspect]
     Active Substance: BUPROPION HYDROCHLORIDE
     Dosage: 450 MG, UNK
     Route: 048

REACTIONS (4)
  - Product substitution issue [Unknown]
  - Therapeutic response changed [Unknown]
  - Depression [Unknown]
  - Drug ineffective [Unknown]
